FAERS Safety Report 5161756-6 (Version None)
Quarter: 2006Q4

REPORT INFORMATION
  Report Type: 
  Country: None (occurrence: None)
  Receive Date: 20061130
  Receipt Date: 20061121
  Transmission Date: 20070319
  Serious: Yes (Hospitalization)
  Sender: FDA-Public Use
  Company Number: FR-GLAXOSMITHKLINE-B0448563A

PATIENT
  Age: 15 Year
  Sex: Male

DRUGS (5)
  1. ZOFRAN [Suspect]
     Route: 048
     Dates: end: 20061014
  2. OMEPRAZOLE [Suspect]
     Dosage: 1UNIT PER DAY
     Route: 048
     Dates: start: 20060929, end: 20061014
  3. BACTRIM DS [Suspect]
     Route: 048
     Dates: start: 20060929, end: 20061014
  4. NATULAN [Suspect]
     Route: 048
     Dates: start: 20060929, end: 20061014
  5. CACIT VITAMINE D3 [Suspect]
     Dosage: 1UNIT PER DAY
     Route: 048
     Dates: start: 20060929, end: 20061014

REACTIONS (2)
  - PYREXIA [None]
  - RASH MACULO-PAPULAR [None]
